FAERS Safety Report 8177190-0 (Version None)
Quarter: 2012Q1

REPORT INFORMATION
  Report Type: 
  Country: None (occurrence: None)
  Receive Date: 20120301
  Receipt Date: 20120220
  Transmission Date: 20120608
  Serious: Yes (Hospitalization)
  Sender: FDA-Public Use
  Company Number: US-BAXTER-2012BH002922

PATIENT
  Age: 69 Year
  Sex: Male

DRUGS (3)
  1. INSULIN [Concomitant]
     Indication: TYPE 2 DIABETES MELLITUS
     Route: 065
  2. DIANEAL [Suspect]
     Indication: PERITONEAL DIALYSIS
     Route: 033
  3. DIANEAL [Suspect]
     Indication: PERITONEAL DIALYSIS
     Route: 033

REACTIONS (3)
  - HERPES ZOSTER [None]
  - PAIN [None]
  - SOMNOLENCE [None]
